FAERS Safety Report 19908127 (Version 7)
Quarter: 2022Q1

REPORT INFORMATION
  Report Type: Report from Study
  Country: AR (occurrence: AR)
  Receive Date: 20211001
  Receipt Date: 20220228
  Transmission Date: 20220423
  Serious: Yes (Hospitalization)
  Sender: FDA-Public Use
  Company Number: AR-SA-SAC20210914001048

PATIENT
  Age: 17 Year
  Sex: Female
  Weight: 53 kg

DRUGS (47)
  1. ISATUXIMAB [Suspect]
     Active Substance: ISATUXIMAB
     Indication: Acute myeloid leukaemia
     Dosage: 20 MG/KG, QW
     Route: 042
     Dates: start: 20210906, end: 20210906
  2. ISATUXIMAB [Suspect]
     Active Substance: ISATUXIMAB
     Dosage: 20 MG/KG, QW
     Route: 042
     Dates: start: 20210830, end: 20210830
  3. ISATUXIMAB [Suspect]
     Active Substance: ISATUXIMAB
  4. DEXAMETHASONE [Suspect]
     Active Substance: DEXAMETHASONE
     Indication: Acute myeloid leukaemia
     Dosage: OPTIONAL ON DAYS -3, -2, -1; DAYS 1, 8, AND 15 DURING THE INDUCTION PERIOD
     Route: 042
  5. DEXAMETHASONE [Suspect]
     Active Substance: DEXAMETHASONE
     Dosage: OPTIONAL ON DAYS -3, -2, -1; DAYS 1, 8, AND 15 DURING THE INDUCTION PERIOD
     Route: 042
  6. FLUDARABINE [Suspect]
     Active Substance: FLUDARABINE PHOSPHATE
     Indication: Acute myeloid leukaemia
     Dosage: 30 MG/M2, DAYS 8 TO 12, INCLUSIVE
     Route: 042
     Dates: start: 20210906, end: 20210906
  7. FLUDARABINE [Suspect]
     Active Substance: FLUDARABINE PHOSPHATE
     Dosage: 30 MG/M2, DAYS 8 TO 12, INCLUSIVE
     Route: 042
  8. CYTARABINE [Suspect]
     Active Substance: CYTARABINE
     Indication: Acute myeloid leukaemia
     Dosage: 2 G/M2, DAYS 8 TO 12, INCLUSIVE
     Route: 042
     Dates: start: 20210906, end: 20210906
  9. CYTARABINE [Suspect]
     Active Substance: CYTARABINE
     Dosage: 2 G/M2, DAYS 8 TO 12, INCLUSIVE
     Route: 042
  10. ETOPOSIDE [Suspect]
     Active Substance: ETOPOSIDE
     Indication: Acute myeloid leukaemia
     Dosage: 100 MG/M2 ON DAYS 50 AND 54
     Route: 042
  11. ETOPOSIDE [Suspect]
     Active Substance: ETOPOSIDE
     Dosage: 100 MG/M2 ON DAYS 50 AND 54
     Route: 042
  12. IDARUBICIN [Suspect]
     Active Substance: IDARUBICIN
     Indication: Acute myeloid leukaemia
     Dosage: 10 MG/M2, DAYS 8, 10 AND 12
     Route: 042
  13. IDARUBICIN [Suspect]
     Active Substance: IDARUBICIN
     Dosage: 10 MG/M2, DAYS 8, 10 AND 12
     Route: 042
  14. DAUNORUBICIN [Suspect]
     Active Substance: DAUNORUBICIN
     Indication: Acute myeloid leukaemia
     Dosage: 60 MG/M2, CYCLE 1 DAY 8, OPTIONAL FOR CYCLE 1 DAYS 10 AND 12, AND OPTIONAL FOR CYCLE 2.
     Route: 042
  15. DAUNORUBICIN [Suspect]
     Active Substance: DAUNORUBICIN
     Dosage: 60 MG/M2, CYCLE 1 DAY 8, OPTIONAL FOR CYCLE 1 DAYS 10 AND 12, AND OPTIONAL FOR CYCLE 2.
     Route: 042
  16. ACETAMINOPHEN [Concomitant]
     Active Substance: ACETAMINOPHEN
     Indication: Prophylaxis
     Dosage: UNK
     Route: 048
     Dates: start: 20210903, end: 20210903
  17. ACETAMINOPHEN [Concomitant]
     Active Substance: ACETAMINOPHEN
     Dosage: TOTAL DAILY DOSE: 1000 MG
     Route: 048
     Dates: start: 20210830, end: 20210830
  18. ACETAMINOPHEN [Concomitant]
     Active Substance: ACETAMINOPHEN
     Dosage: TOTAL DAILY DOSE: 1000 MG
     Route: 048
     Dates: start: 20210906, end: 20210906
  19. ACETAMINOPHEN [Concomitant]
     Active Substance: ACETAMINOPHEN
     Dosage: TOTAL DAILY DOSE: 1000 MG
     Route: 048
     Dates: start: 20210913, end: 20210913
  20. METOCLOPRAMIDE [Concomitant]
     Active Substance: METOCLOPRAMIDE
     Dosage: UNK
     Route: 060
     Dates: start: 20210903, end: 20210903
  21. MONTELUKAST [Concomitant]
     Active Substance: MONTELUKAST SODIUM
     Indication: Prophylaxis
     Dosage: TOTAL DAILY DOSE: 10 MG
     Route: 048
     Dates: start: 20210830, end: 20210830
  22. MONTELUKAST [Concomitant]
     Active Substance: MONTELUKAST SODIUM
     Dosage: TOTAL DAILY DOSE: 10 MG
     Route: 048
     Dates: start: 20210906, end: 20210906
  23. MONTELUKAST [Concomitant]
     Active Substance: MONTELUKAST SODIUM
     Dosage: TOTAL DAILY DOSE: 10 MG
     Route: 048
     Dates: start: 20210913, end: 20210913
  24. DIFENHIDRAMIN [Concomitant]
     Indication: Prophylaxis
     Dosage: TOTAL DAILY DOSE: 50 MG
     Route: 042
     Dates: start: 20210830, end: 20210830
  25. DIFENHIDRAMIN [Concomitant]
     Dosage: TOTAL DAILY DOSE: 16 MG
     Route: 042
     Dates: start: 20210906, end: 20210906
  26. DIFENHIDRAMIN [Concomitant]
     Dosage: TOTAL DAILY DOSE: 16 MG
     Route: 042
     Dates: start: 20210913, end: 20210913
  27. DEXAMETHASONE [Concomitant]
     Active Substance: DEXAMETHASONE
     Indication: Prophylaxis
     Dosage: TOTAL DAILY DOSE: 16 MG
     Route: 042
     Dates: start: 20210830, end: 20210830
  28. DEXAMETHASONE [Concomitant]
     Active Substance: DEXAMETHASONE
     Dosage: TOTAL DAILY DOSE: 16 MG
     Route: 042
     Dates: start: 20210906, end: 20210906
  29. DEXAMETHASONE [Concomitant]
     Active Substance: DEXAMETHASONE
     Dosage: UNK
     Route: 042
     Dates: start: 20210831, end: 20210831
  30. DEXAMETHASONE [Concomitant]
     Active Substance: DEXAMETHASONE
     Dosage: UNK
     Route: 048
     Dates: start: 20210827, end: 20210830
  31. DEXAMETHASONE [Concomitant]
     Active Substance: DEXAMETHASONE
     Dosage: TOTAL DAILY DOSE: 16 MG
     Route: 042
     Dates: start: 20210913, end: 20210913
  32. IMIPENEM [Concomitant]
     Active Substance: IMIPENEM
     Dosage: UNK
     Route: 042
     Dates: start: 20210910, end: 20211015
  33. VORICONAZOLE [Concomitant]
     Active Substance: VORICONAZOLE
     Dosage: UNK
     Route: 042
     Dates: start: 20210910
  34. ACYCLOVIR [Concomitant]
     Active Substance: ACYCLOVIR
     Dosage: UNK
     Route: 042
     Dates: start: 20210910
  35. DICLOFENAC [Concomitant]
     Active Substance: DICLOFENAC
     Dosage: UNK
     Route: 042
     Dates: start: 20210910
  36. ONDANSETRON [Concomitant]
     Active Substance: ONDANSETRON
     Dosage: UNK
     Route: 042
     Dates: start: 20210910
  37. METHOTREXATE [Concomitant]
     Active Substance: METHOTREXATE
     Dosage: UNK
     Dates: start: 20210831, end: 20210831
  38. CYTARABINE [Concomitant]
     Active Substance: CYTARABINE
     Dosage: UNK
     Dates: start: 20210831, end: 20210831
  39. VANCOMYCIN [Concomitant]
     Active Substance: VANCOMYCIN
     Dosage: UNK
     Route: 048
     Dates: start: 20210920, end: 20211015
  40. AVIBACTAM SODIUM\CEFTAZIDIME [Concomitant]
     Active Substance: AVIBACTAM SODIUM\CEFTAZIDIME
     Dosage: UNK
     Route: 042
     Dates: start: 20210924, end: 20211015
  41. COLISTIN [Concomitant]
     Active Substance: COLISTIN
     Dosage: UNK
     Route: 042
     Dates: start: 20210924, end: 20211015
  42. METRONIDAZOLE [Concomitant]
     Active Substance: METRONIDAZOLE
     Dosage: UNK
     Route: 042
     Dates: start: 20210924, end: 20211015
  43. POSACONAZOLE [Concomitant]
     Active Substance: POSACONAZOLE
     Indication: Prophylaxis
     Dosage: UNK
     Route: 048
     Dates: start: 20211015
  44. SULFAMETHOXAZOLE [Concomitant]
     Active Substance: SULFAMETHOXAZOLE
     Indication: Prophylaxis
     Dosage: UNK
     Route: 048
     Dates: start: 20211015
  45. OMEPRAZOLE [Concomitant]
     Active Substance: OMEPRAZOLE
     Dosage: UNK
     Route: 048
     Dates: start: 20211015
  46. CONTROL K [Concomitant]
     Dosage: UNK
     Route: 048
     Dates: start: 20211015
  47. CARBOHYDRATES\FATTY ACIDS\MINERALS\PROTEIN\VITAMINS [Concomitant]
     Active Substance: CARBOHYDRATES\FATTY ACIDS\MINERALS\PROTEIN\VITAMINS
     Dosage: UNK
     Route: 048
     Dates: start: 20211015

REACTIONS (3)
  - Septic shock [Recovered/Resolved]
  - Hypokalaemia [Recovered/Resolved]
  - Pyrexia [Recovered/Resolved]

NARRATIVE: CASE EVENT DATE: 20210910
